FAERS Safety Report 6422104-4 (Version None)
Quarter: 2009Q4

REPORT INFORMATION
  Report Type: 
  Country: None (occurrence: None)
  Receive Date: 20091029
  Receipt Date: 20091029
  Transmission Date: 20100525
  Serious: No
  Sender: FDA-Public Use
  Company Number: None

PATIENT
  Sex: Male
  Weight: 115.5 kg

DRUGS (2)
  1. BUPROPION HCL [Suspect]
     Indication: DEPRESSION
     Dosage: 150MG BID PO
     Route: 048
     Dates: start: 20080401, end: 20081101
  2. BUPROPION HCL [Suspect]
     Indication: FATIGUE
     Dosage: 150MG BID PO
     Route: 048
     Dates: start: 20080401, end: 20081101

REACTIONS (5)
  - CONDITION AGGRAVATED [None]
  - DISEASE RECURRENCE [None]
  - MYALGIA [None]
  - PRODUCT SUBSTITUTION ISSUE [None]
  - TREATMENT FAILURE [None]
